FAERS Safety Report 5725814-7 (Version None)
Quarter: 2008Q2

REPORT INFORMATION
  Report Type: 
  Country: None (occurrence: None)
  Receive Date: 20080429
  Receipt Date: 20080424
  Transmission Date: 20081010
  Serious: Yes (Hospitalization)
  Sender: FDA-Public Use
  Company Number: 2008SP001922

PATIENT
  Age: 71 Year
  Sex: Female
  Weight: 55.3 kg

DRUGS (2)
  1. TEMODAR [Suspect]
     Indication: GLIOBLASTOMA MULTIFORME
     Dosage: 115 MG;QD;PO
     Route: 048
     Dates: start: 20071226, end: 20080121
  2. TEMODAR [Suspect]
     Indication: GLIOBLASTOMA MULTIFORME
     Dosage: 115 MG;QD;PO
     Route: 048
     Dates: end: 20080207

REACTIONS (9)
  - DEHYDRATION [None]
  - DIARRHOEA [None]
  - GASTROENTERITIS VIRAL [None]
  - HYPOMAGNESAEMIA [None]
  - HYPONATRAEMIA [None]
  - HYPOTENSION [None]
  - LYMPHOPENIA [None]
  - RENAL FAILURE ACUTE [None]
  - VOMITING [None]
